FAERS Safety Report 6617548-1 (Version None)
Quarter: 2010Q1

REPORT INFORMATION
  Report Type: 
  Country: None (occurrence: None)
  Receive Date: 20100308
  Receipt Date: 20100301
  Transmission Date: 20100710
  Serious: Yes (Death, Life-Threatening, Hospitalization)
  Sender: FDA-Public Use
  Company Number: US-SANOFI-AVENTIS-2009SA000785

PATIENT
  Age: 75 Year
  Sex: Male
  Weight: 68 kg

DRUGS (15)
  1. AFLIBERCEPT [Suspect]
     Indication: PROSTATE CANCER METASTATIC
     Route: 042
     Dates: start: 20091104, end: 20091104
  2. AFLIBERCEPT [Suspect]
     Route: 042
     Dates: start: 20090722, end: 20090722
  3. DOCETAXEL [Suspect]
     Indication: PROSTATE CANCER METASTATIC
     Route: 042
     Dates: start: 20091104, end: 20091104
  4. DOCETAXEL [Suspect]
     Route: 042
     Dates: start: 20090722, end: 20090722
  5. PREDNISONE [Suspect]
     Indication: PROSTATE CANCER METASTATIC
     Route: 048
     Dates: start: 20090722, end: 20091104
  6. ZOLADEX [Concomitant]
     Dates: start: 20020601
  7. HYTRIN [Concomitant]
  8. LIPITOR [Concomitant]
  9. TOPROL-XL [Concomitant]
  10. CALCIUM [Concomitant]
  11. VITAMIN D [Concomitant]
  12. NITRGLYCERIN TRANSDERMAL SYSTEM [Concomitant]
     Dosage: 0.1 MG/HR
  13. XANAX [Concomitant]
     Route: 048
  14. DARVOCET-N 100 [Concomitant]
     Route: 048
  15. LEVAQUIN [Concomitant]

REACTIONS (23)
  - ACUTE RESPIRATORY FAILURE [None]
  - ADRENAL INSUFFICIENCY [None]
  - ARTERIOSCLEROSIS CORONARY ARTERY [None]
  - ASCITES [None]
  - BLOOD LACTIC ACID INCREASED [None]
  - CARDIO-RESPIRATORY ARREST [None]
  - CONSTIPATION [None]
  - DEATH [None]
  - DIASTOLIC DYSFUNCTION [None]
  - DISORIENTATION [None]
  - EJECTION FRACTION DECREASED [None]
  - HYPOTENSION [None]
  - LETHARGY [None]
  - MENTAL STATUS CHANGES [None]
  - METABOLIC ACIDOSIS [None]
  - PLEURAL EFFUSION [None]
  - PNEUMONIA ASPIRATION [None]
  - SEPSIS [None]
  - SEPTIC SHOCK [None]
  - SINUS TACHYCARDIA [None]
  - UNRESPONSIVE TO STIMULI [None]
  - VENTRICULAR EXTRASYSTOLES [None]
  - VOMITING [None]
